FAERS Safety Report 6472868-9 (Version None)
Quarter: 2009Q4

REPORT INFORMATION
  Report Type: 
  Country: None (occurrence: None)
  Receive Date: 20091201
  Receipt Date: 20091119
  Transmission Date: 20100525
  Serious: Yes (Other)
  Sender: FDA-Public Use
  Company Number: DE-1171510

PATIENT
  Age: 57 Year
  Sex: Male

DRUGS (3)
  1. FLUORESCEIN SODIUM (FLUORESCEIN SODIUM) 10 % INJECTION SOLUTION FOR IN [Suspect]
     Dosage: INTRAVENOUS BOLUS
     Route: 040
     Dates: start: 20091109
  2. BISOPROLOL (BISOPROLOL FUMARATE) [Concomitant]
  3. MARCUMAR [Concomitant]

REACTIONS (6)
  - ASTHENIA [None]
  - DIZZINESS [None]
  - HYPERHIDROSIS [None]
  - LOSS OF CONSCIOUSNESS [None]
  - SYNCOPE [None]
  - YELLOW SKIN [None]
